FAERS Safety Report 9307473 (Version 1)
Quarter: 2013Q2

REPORT INFORMATION
  Report Type: Report from Study
  Country: CA (occurrence: CA)
  Receive Date: 20130524
  Receipt Date: 20130524
  Transmission Date: 20140414
  Serious: Yes (Hospitalization, Other)
  Sender: FDA-Public Use
  Company Number: CA-ROCHE-1202179

PATIENT
  Age: 66 Year
  Sex: Male
  Weight: 87 kg

DRUGS (12)
  1. AVASTIN [Suspect]
     Indication: GLIOBLASTOMA
     Route: 042
     Dates: start: 20130226, end: 20130510
  2. DECADRON [Suspect]
     Indication: GLIOBLASTOMA
     Route: 065
  3. TYLENOL [Concomitant]
     Indication: PREMEDICATION
     Route: 048
     Dates: start: 20130226, end: 20130510
  4. BENADRYL [Concomitant]
     Indication: PREMEDICATION
     Route: 048
     Dates: start: 20130226, end: 20130510
  5. CITALOPRAM [Concomitant]
  6. BETAHISTINE [Concomitant]
  7. LORAZEPAM [Concomitant]
  8. PANTOLOC [Concomitant]
  9. ESOMEPRAZOLE [Concomitant]
  10. LEVETIRACETAM [Concomitant]
  11. METHYLPHENIDATE [Concomitant]
  12. ROSUVASTATIN [Concomitant]

REACTIONS (7)
  - Urinary tract infection [Recovering/Resolving]
  - Disease progression [Unknown]
  - Headache [Recovered/Resolved]
  - Nausea [Recovered/Resolved]
  - Weight increased [Unknown]
  - Protein urine [Unknown]
  - Blood pressure increased [Unknown]
